FAERS Safety Report 25927565 (Version 1)
Quarter: 2025Q4

REPORT INFORMATION
  Report Type: Spontaneous
  Country: US (occurrence: US)
  Receive Date: 20251015
  Receipt Date: 20251015
  Transmission Date: 20260117
  Serious: No
  Sender: SANDOZ
  Company Number: US-SANDOZ-SDZ2025US074574

PATIENT
  Sex: Female

DRUGS (1)
  1. CIPROFLOXACIN AND DEXAMETHASONE [Suspect]
     Active Substance: CIPROFLOXACIN HYDROCHLORIDE\DEXAMETHASONE
     Indication: Product used for unknown indication
     Dosage: UNK ( CIPROFLOXACIN 0.3% AND DEXAMETHASONE  0.1% STERILE OTIC SUSPENSION (AGX))
     Route: 065

REACTIONS (4)
  - Dizziness [Unknown]
  - Ear pain [Unknown]
  - Condition aggravated [Unknown]
  - Drug ineffective [Unknown]
